FAERS Safety Report 12778652 (Version 1)
Quarter: 2016Q3

REPORT INFORMATION
  Report Type: Spontaneous
  Country: JP (occurrence: JP)
  Receive Date: 20160926
  Receipt Date: 20160926
  Transmission Date: 20161109
  Serious: Yes (Hospitalization)
  Sender: FDA-Public Use
  Company Number: JP-SHIRE-JP201611970

PATIENT
  Age: 67 Year
  Sex: Male

DRUGS (2)
  1. FOSRENOL [Suspect]
     Active Substance: LANTHANUM CARBONATE
     Indication: PRODUCT USED FOR UNKNOWN INDICATION
     Dosage: UNK, UNKNOWN
     Route: 048
  2. RIONA [Suspect]
     Active Substance: FERRIC CITRATE ANHYDROUS
     Indication: BLOOD PHOSPHORUS ABNORMAL
     Dosage: UNK, UNKNOWN
     Route: 048

REACTIONS (6)
  - Malaise [Unknown]
  - Diarrhoea [Unknown]
  - Faeces discoloured [Unknown]
  - Renal disorder [Unknown]
  - Drug ineffective [Unknown]
  - Nausea [Unknown]
